FAERS Safety Report 8889642 (Version 1)
Quarter: 2012Q4

REPORT INFORMATION
  Report Type: 
  Country: JP (occurrence: JP)
  Receive Date: 20121107
  Receipt Date: 20121107
  Transmission Date: 20130627
  Serious: Yes (Hospitalization, Other)
  Sender: FDA-Public Use
  Company Number: JP-ELI_LILLY_AND_COMPANY-JP201210009296

PATIENT
  Sex: Female

DRUGS (3)
  1. FORTEO [Suspect]
     Dosage: UNK
     Route: 058
     Dates: start: 201104, end: 20120706
  2. FORTEO [Suspect]
     Dosage: UNK
     Route: 058
     Dates: start: 20120808, end: 20120823
  3. FORTEO [Suspect]
     Dosage: UNK
     Route: 058
     Dates: start: 20120914, end: 20121015

REACTIONS (3)
  - Fracture [Unknown]
  - Hospitalisation [Unknown]
  - Cholecystitis [Unknown]
